FAERS Safety Report 25540750 (Version 2)
Quarter: 2025Q3

REPORT INFORMATION
  Report Type: Spontaneous
  Country: EU (occurrence: EU)
  Receive Date: 20250710
  Receipt Date: 20250825
  Transmission Date: 20251020
  Serious: Yes (Life-Threatening, Hospitalization, Other)
  Sender: MYLAN
  Company Number: EU-MYLANLABS-2025M1057825

PATIENT
  Age: 71 Year
  Sex: Female

DRUGS (6)
  1. EPINEPHRINE [Suspect]
     Active Substance: EPINEPHRINE
     Indication: Anaphylactic reaction
  2. EPINEPHRINE [Suspect]
     Active Substance: EPINEPHRINE
  3. EPINEPHRINE [Suspect]
     Active Substance: EPINEPHRINE
  4. HYDROCORTISONE [Suspect]
     Active Substance: HYDROCORTISONE
     Indication: Product used for unknown indication
  5. CLEMASTINE [Suspect]
     Active Substance: CLEMASTINE
     Indication: Product used for unknown indication
  6. BUDESONIDE\FORMOTEROL [Suspect]
     Active Substance: BUDESONIDE\FORMOTEROL
     Indication: Product used for unknown indication

REACTIONS (2)
  - Kounis syndrome [Unknown]
  - Drug ineffective [Unknown]
